FAERS Safety Report 14081247 (Version 1)
Quarter: 2017Q4

REPORT INFORMATION
  Report Type: Spontaneous
  Country: US (occurrence: US)
  Receive Date: 20171012
  Receipt Date: 20171012
  Transmission Date: 20180321
  Serious: Yes (Disabling, Other)
  Sender: FDA-Public Use
  Company Number: US-SA-2017SA195660

PATIENT
  Sex: Male

DRUGS (2)
  1. COUMADIN [Suspect]
     Active Substance: WARFARIN SODIUM
     Route: 065
  2. PLAVIX [Suspect]
     Active Substance: CLOPIDOGREL BISULFATE
     Route: 048

REACTIONS (8)
  - Post-traumatic stress disorder [Unknown]
  - Hypoaesthesia [Unknown]
  - Personality change [Unknown]
  - Bipolar disorder [Unknown]
  - Cerebral haemorrhage [Unknown]
  - Impaired work ability [Unknown]
  - Visual impairment [Unknown]
  - Mental impairment [Unknown]

NARRATIVE: CASE EVENT DATE: 2002
